FAERS Safety Report 13223752 (Version 1)
Quarter: 2017Q1

REPORT INFORMATION
  Report Type: Spontaneous
  Country: US (occurrence: US)
  Receive Date: 20170212
  Receipt Date: 20170212
  Transmission Date: 20170428
  Serious: No
  Sender: FDA-Public Use
  Company Number: US-BIOGEN-2017BI00353648

PATIENT
  Sex: Female

DRUGS (1)
  1. TECFIDERA [Suspect]
     Active Substance: DIMETHYL FUMARATE
     Indication: MULTIPLE SCLEROSIS
     Route: 065
     Dates: start: 20160715

REACTIONS (5)
  - Emotional disorder [Unknown]
  - Menstrual disorder [Unknown]
  - Drug dose omission [Unknown]
  - Multiple sclerosis [Unknown]
  - Crying [Unknown]
